FAERS Safety Report 10791378 (Version 1)
Quarter: 2015Q1

REPORT INFORMATION
  Report Type: Spontaneous
  Country: FR (occurrence: FR)
  Receive Date: 20150213
  Receipt Date: 20150213
  Transmission Date: 20150721
  Serious: Yes (Other)
  Sender: FDA-Public Use
  Company Number: FR-CIPLA LTD.-2015FR00976

PATIENT

DRUGS (3)
  1. GRANULOCYTE-COLONY STIMULATING FACTOR [Concomitant]
     Active Substance: FILGRASTIM
  2. CISPLATIN. [Suspect]
     Active Substance: CISPLATIN
     Indication: PENILE SQUAMOUS CELL CARCINOMA
     Dosage: 50 MG/M2 ON DAY 1 OVER 1 HOUR ON DAYS1 AND DAY 15 OF A 28-DAY CYCLE
  3. GEMCITABINE [Suspect]
     Active Substance: GEMCITABINE\GEMCITABINE HYDROCHLORIDE
     Indication: PENILE SQUAMOUS CELL CARCINOMA
     Dosage: 1,250 MG/M2 ON DAY 1 OVER 30 MINUTES ON DAY 1 AND DAY 15 OF A 28-DAY CYCLE

REACTIONS (2)
  - Haematotoxicity [Unknown]
  - Gastrointestinal toxicity [Unknown]
